FAERS Safety Report 21110336 (Version 1)
Quarter: 2022Q3

REPORT INFORMATION
  Report Type: Spontaneous
  Country: US (occurrence: None)
  Receive Date: 20220720
  Receipt Date: 20220720
  Transmission Date: 20221027
  Serious: No
  Sender: FDA-Public Use
  Company Number: None

PATIENT
  Age: 63 Year
  Sex: Female

DRUGS (6)
  1. INGREZZA [Suspect]
     Active Substance: VALBENAZINE
     Indication: Tardive dyskinesia
     Dosage: FREQUENCY : DAILY;?
     Route: 048
     Dates: start: 20220418, end: 20220425
  2. CLONAZEPAM [Concomitant]
     Active Substance: CLONAZEPAM
  3. DEXTROAMPHETAMINE [Concomitant]
     Active Substance: DEXTROAMPHETAMINE
  4. DIFLUNISAL [Concomitant]
     Active Substance: DIFLUNISAL
  5. FLUVOXAMINE [Concomitant]
     Active Substance: FLUVOXAMINE
  6. PREGABALIN [Concomitant]
     Active Substance: PREGABALIN

REACTIONS (4)
  - Tardive dyskinesia [None]
  - Condition aggravated [None]
  - Muscle twitching [None]
  - Adverse drug reaction [None]

NARRATIVE: CASE EVENT DATE: 20220425
